FAERS Safety Report 13136155 (Version 1)
Quarter: 2017Q1

REPORT INFORMATION
  Report Type: Spontaneous
  Country: FR (occurrence: FR)
  Receive Date: 20170121
  Receipt Date: 20170121
  Transmission Date: 20170428
  Serious: Yes (Other)
  Sender: FDA-Public Use
  Company Number: FR-ACCORD-047547

PATIENT
  Age: 26 Year
  Sex: Female

DRUGS (5)
  1. TRAMADOL/TRAMADOL HYDROCHLORIDE [Suspect]
     Active Substance: TRAMADOL HYDROCHLORIDE
     Indication: ANALGESIC THERAPY
  2. NICARDIPINE [Concomitant]
     Active Substance: NICARDIPINE
     Indication: POSTERIOR REVERSIBLE ENCEPHALOPATHY SYNDROME
  3. PHLOROGLUCINOL [Concomitant]
     Active Substance: PHLOROGLUCINOL
     Indication: ANALGESIC THERAPY
  4. NEFOPAM [Concomitant]
     Active Substance: NEFOPAM
     Indication: ANALGESIC THERAPY
  5. PARACETAMOL [Suspect]
     Active Substance: ACETAMINOPHEN
     Indication: ANALGESIC THERAPY
     Route: 042

REACTIONS (5)
  - Porphyria [Recovered/Resolved]
  - Anxiety [None]
  - Acute kidney injury [Unknown]
  - Hyponatraemia [None]
  - Hepatocellular injury [Unknown]
